FAERS Safety Report 7546382-3 (Version None)
Quarter: 2011Q2

REPORT INFORMATION
  Report Type: 
  Country: None (occurrence: None)
  Receive Date: 20110614
  Receipt Date: 20110606
  Transmission Date: 20111010
  Serious: Yes (Death)
  Sender: FDA-Public Use
  Company Number: JP-PFIZER INC-2011126438

PATIENT
  Sex: Female

DRUGS (3)
  1. VALSARTAN [Suspect]
     Dosage: 80 MG, UNK/DAY
     Route: 048
  2. AMLODIPINE BESYLATE [Suspect]
     Dosage: 5 MG, UNK/DAY
     Route: 048
  3. ATORVASTATIN CALCIUM [Suspect]
     Dosage: 10 MG, DAILY
     Route: 048
     Dates: start: 20101104, end: 20101215

REACTIONS (1)
  - SUBARACHNOID HAEMORRHAGE [None]
